FAERS Safety Report 17174513 (Version 1)
Quarter: 2019Q4

REPORT INFORMATION
  Report Type: Report from Study
  Country: IT (occurrence: IT)
  Receive Date: 20191219
  Receipt Date: 20191219
  Transmission Date: 20200122
  Serious: Yes (Hospitalization)
  Sender: FDA-Public Use
  Company Number: IT-MYLANLABS-2019M1124790

PATIENT
  Age: 83 Year
  Sex: Female

DRUGS (7)
  1. VYTORIN [Concomitant]
     Active Substance: EZETIMIBE\SIMVASTATIN
  2. KADIUR [Concomitant]
     Active Substance: BUTHIAZIDE\CANRENOATE POTASSIUM
  3. LANSOX [Concomitant]
     Active Substance: LANSOPRAZOLE
  4. TICLOPIDINE [Suspect]
     Active Substance: TICLOPIDINE
     Indication: ENDARTERECTOMY
     Dosage: 250 MILLIGRAM, QD
     Route: 048
     Dates: start: 20190101, end: 20190203
  5. LERCANIDIPINE [Concomitant]
     Active Substance: LERCANIDIPINE
  6. TIARTAN [Concomitant]
     Active Substance: EPROSARTAN MESYLATE\HYDROCHLOROTHIAZIDE
  7. ATENOLOL. [Concomitant]
     Active Substance: ATENOLOL

REACTIONS (3)
  - Aphasia [Recovered/Resolved with Sequelae]
  - Hemiparesis [Recovered/Resolved with Sequelae]
  - Cerebral ischaemia [Recovered/Resolved with Sequelae]

NARRATIVE: CASE EVENT DATE: 20190203
